FAERS Safety Report 9224812 (Version 1)
Quarter: 2013Q1

REPORT INFORMATION
  Report Type: Spontaneous
  Country: US (occurrence: None)
  Receive Date: 20120919
  Receipt Date: 20120919
  Transmission Date: 20140127
  Serious: Yes (Other)
  Sender: FDA-Public Use
  Company Number: 20120499

PATIENT
  Sex: Female

DRUGS (1)
  1. SPRIX [Suspect]

REACTIONS (1)
  - Chest pain [None]
